FAERS Safety Report 18066279 (Version 1)
Quarter: 2020Q3

REPORT INFORMATION
  Report Type: Spontaneous
  Country: US (occurrence: US)
  Receive Date: 20200724
  Receipt Date: 20200724
  Transmission Date: 20201103
  Serious: No
  Sender: FDA-Public Use
  Company Number: NVSC2020US208940

PATIENT
  Age: 78 Year
  Sex: Female

DRUGS (1)
  1. VOLTAREN EMULGEL [Suspect]
     Active Substance: DICLOFENAC DIETHYLAMINE
     Indication: SPONDYLITIS
     Dosage: UNK
     Route: 065
     Dates: start: 20200714, end: 20200716

REACTIONS (2)
  - Product administered at inappropriate site [Unknown]
  - Product use in unapproved indication [Unknown]

NARRATIVE: CASE EVENT DATE: 20200714
